FAERS Safety Report 5509741-6 (Version None)
Quarter: 2007Q4

REPORT INFORMATION
  Report Type: 
  Country: None (occurrence: None)
  Receive Date: 20071107
  Receipt Date: 20071107
  Transmission Date: 20080405
  Serious: Yes (Life-Threatening)
  Sender: FDA-Public Use
  Company Number: None

PATIENT
  Age: 34 Year
  Sex: Female
  Weight: 60.782 kg

DRUGS (1)
  1. CHANTIX [Suspect]
     Indication: EX-SMOKER
     Dosage: 1MG 2X DAILY PO
     Route: 048
     Dates: start: 20070921, end: 20071105

REACTIONS (15)
  - ABNORMAL BEHAVIOUR [None]
  - ABNORMAL DREAMS [None]
  - AGGRESSION [None]
  - ANGER [None]
  - CRYING [None]
  - DECREASED INTEREST [None]
  - DEPRESSION [None]
  - DEPRESSION SUICIDAL [None]
  - FEELING ABNORMAL [None]
  - FEELINGS OF WORTHLESSNESS [None]
  - INSOMNIA [None]
  - LETHARGY [None]
  - PSYCHOTIC DISORDER [None]
  - SCREAMING [None]
  - SELF-INJURIOUS IDEATION [None]
